FAERS Safety Report 8671084 (Version 2)
Quarter: 2013Q3

REPORT INFORMATION
  Report Type: Spontaneous
  Country: US (occurrence: US)
  Receive Date: 20120718
  Receipt Date: 20130802
  Transmission Date: 20140515
  Serious: No
  Sender: FDA-Public Use
  Company Number: US-BRISTOL-MYERS SQUIBB COMPANY-16544959

PATIENT
  Age: 78 Year
  Sex: Female
  Weight: 86.17 kg

DRUGS (8)
  1. COUMADIN [Suspect]
     Indication: THROMBOSIS
     Dosage: 7.5MG ONCE DAILY EVERY 3RD DAY AND 5MG ONCE DAILY ON EVERY OTHER DAY.
     Dates: start: 200903
  2. SYNTHROID [Concomitant]
  3. HYDROCHLOROTHIAZIDE [Concomitant]
  4. NORVASC [Concomitant]
  5. VITAMIN B12 [Concomitant]
  6. NEURONTIN [Concomitant]
  7. TYLENOL [Concomitant]
  8. BUSPAR [Concomitant]

REACTIONS (2)
  - International normalised ratio fluctuation [Unknown]
  - Rash macular [Unknown]
